FAERS Safety Report 14478797 (Version 2)
Quarter: 2018Q2

REPORT INFORMATION
  Report Type: Report from Study
  Country: None (occurrence: US)
  Receive Date: 20180202
  Receipt Date: 20180417
  Transmission Date: 20180711
  Serious: Yes (Hospitalization)
  Sender: FDA-Public Use
  Company Number: US-ABBVIE-17K-163-1952384-00

PATIENT
  Age: 63 Year
  Sex: Male

DRUGS (2)
  1. HUMIRA [Suspect]
     Active Substance: ADALIMUMAB
     Indication: PSORIASIS
     Route: 058
     Dates: start: 20170405, end: 201707
  2. HUMIRA [Suspect]
     Active Substance: ADALIMUMAB
     Route: 058
     Dates: start: 2017

REACTIONS (30)
  - Mobility decreased [Unknown]
  - Laceration [Unknown]
  - Pyrexia [Recovered/Resolved]
  - Prostatic specific antigen increased [Unknown]
  - Fatigue [Unknown]
  - Therapeutic response unexpected [Unknown]
  - Wheezing [Unknown]
  - Injection site pain [Recovered/Resolved]
  - Chills [Unknown]
  - Skin irritation [Unknown]
  - Chills [Recovered/Resolved]
  - Dry skin [Unknown]
  - Scab [Unknown]
  - Psoriasis [Recovering/Resolving]
  - Arthralgia [Unknown]
  - Renal tubular disorder [Unknown]
  - Decubitus ulcer [Recovering/Resolving]
  - Skin exfoliation [Unknown]
  - Hypoaesthesia [Unknown]
  - Cough [Unknown]
  - Arthralgia [Unknown]
  - Influenza [Recovered/Resolved]
  - Nasopharyngitis [Unknown]
  - Renal disorder [Unknown]
  - Pneumonia [Unknown]
  - Pain of skin [Recovering/Resolving]
  - Headache [Unknown]
  - Pre-existing condition improved [Unknown]
  - Pain [Recovered/Resolved]
  - Peripheral swelling [Unknown]

NARRATIVE: CASE EVENT DATE: 2017
